FAERS Safety Report 19714000 (Version 1)
Quarter: 2021Q3

REPORT INFORMATION
  Report Type: Spontaneous
  Country: US (occurrence: US)
  Receive Date: 20210817
  Receipt Date: 20210817
  Transmission Date: 20211014
  Serious: Yes (Hospitalization)
  Sender: FDA-Public Use
  Company Number: None

PATIENT
  Sex: Male
  Weight: 65.5 kg

DRUGS (5)
  1. MERCAPTOPURINE. [Concomitant]
     Active Substance: MERCAPTOPURINE
  2. ONCASPAR [Concomitant]
     Active Substance: PEGASPARGASE
  3. CYCLOPHOSPHAMIDE. [Suspect]
     Active Substance: CYCLOPHOSPHAMIDE
  4. CYARABINE [Concomitant]
  5. VINCRISTINE SULFATE. [Concomitant]
     Active Substance: VINCRISTINE SULFATE

REACTIONS (15)
  - Heart rate increased [None]
  - Vomiting [None]
  - Flank pain [None]
  - Asthenia [None]
  - Hypotension [None]
  - Nausea [None]
  - Sepsis [None]
  - Anaemia [None]
  - Febrile neutropenia [None]
  - Lactic acidosis [None]
  - Dehydration [None]
  - Neutropenia [None]
  - Pyrexia [None]
  - Coagulopathy [None]
  - Haemoglobin decreased [None]

NARRATIVE: CASE EVENT DATE: 20210813
